FAERS Safety Report 8062133-0 (Version None)
Quarter: 2012Q1

REPORT INFORMATION
  Report Type: 
  Country: None (occurrence: None)
  Receive Date: 20120123
  Receipt Date: 20120110
  Transmission Date: 20120608
  Serious: Yes (Hospitalization, Other)
  Sender: FDA-Public Use
  Company Number: US-ELI_LILLY_AND_COMPANY-US201010000570

PATIENT
  Sex: Female

DRUGS (11)
  1. VITAMIN D [Concomitant]
  2. FORTEO [Suspect]
     Indication: OSTEOPOROSIS
     Dosage: 20 UG, QD
     Route: 065
     Dates: start: 20100915
  3. VICODIN [Concomitant]
     Indication: PAIN
  4. FORTEO [Suspect]
     Dosage: 20 UG, QD
     Route: 065
  5. FORTEO [Suspect]
     Dosage: 20 UG, QD
     Route: 065
  6. FORTEO [Suspect]
     Dosage: 20 UG, QD
     Route: 065
  7. PLAVIX [Concomitant]
     Dosage: UNK, UNKNOWN
  8. FORTEO [Suspect]
     Dosage: 20 UG, QD
     Route: 065
  9. FORTEO [Suspect]
     Dosage: 20 UG, QD
     Route: 065
  10. LIDOCAINE [Concomitant]
  11. ASPIRIN [Concomitant]
     Dosage: UNK, UNKNOWN

REACTIONS (21)
  - MOVEMENT DISORDER [None]
  - NECK PAIN [None]
  - ASTHENIA [None]
  - VITAMIN D DECREASED [None]
  - NERVOUSNESS [None]
  - LIMB INJURY [None]
  - INJECTION SITE PAIN [None]
  - JOINT DISLOCATION [None]
  - MUSCULOSKELETAL DISCOMFORT [None]
  - LIMB DISCOMFORT [None]
  - TOOTH FRACTURE [None]
  - COUGH [None]
  - BONE DISORDER [None]
  - PAIN [None]
  - MASTICATION DISORDER [None]
  - HAEMORRHAGE [None]
  - PARAESTHESIA [None]
  - FLATULENCE [None]
  - MASS [None]
  - INJECTION SITE HAEMATOMA [None]
  - ROTATOR CUFF SYNDROME [None]
